FAERS Safety Report 4605949-2 (Version None)
Quarter: 2005Q1

REPORT INFORMATION
  Report Type: 
  Country: None (occurrence: None)
  Receive Date: 20050311
  Receipt Date: 20050301
  Transmission Date: 20050727
  Serious: Yes (Hospitalization, Other)
  Sender: FDA-Public Use
  Company Number: 20030805611

PATIENT
  Age: 34 Year
  Sex: Male

DRUGS (3)
  1. LAMIVUDINE [Suspect]
     Indication: HIV INFECTION
     Route: 048
     Dates: start: 20030606, end: 20030826
  2. ZIDOVUDINE [Suspect]
     Indication: HIV INFECTION
     Route: 065
     Dates: start: 20030606, end: 20030826
  3. PROCRIT [Suspect]
     Dosage: 6000IU WEEKLY
     Route: 058
     Dates: start: 20030606, end: 20030818

REACTIONS (4)
  - ANAEMIA OF CHRONIC DISEASE [None]
  - DIZZINESS [None]
  - DYSPNOEA [None]
  - HAEMOGLOBIN DECREASED [None]
